FAERS Safety Report 14038440 (Version 6)
Quarter: 2018Q4

REPORT INFORMATION
  Report Type: Report from Study
  Country: JP (occurrence: JP)
  Receive Date: 20171004
  Receipt Date: 20181115
  Transmission Date: 20190204
  Serious: Yes (Life-Threatening, Hospitalization, Other)
  Sender: FDA-Public Use
  Company Number: JP-PFIZER INC-2017424763

PATIENT
  Age: 3 Month
  Sex: Female
  Weight: 3 kg

DRUGS (16)
  1. RAPALIMUS [Suspect]
     Active Substance: SIROLIMUS
     Dosage: 0.3 MG, 1X/DAY
     Route: 048
     Dates: start: 20170413, end: 20170509
  2. RAPALIMUS [Suspect]
     Active Substance: SIROLIMUS
     Dosage: 0.4 MG, 1X/DAY
     Route: 048
     Dates: start: 20170510, end: 20170607
  3. RAPALIMUS [Suspect]
     Active Substance: SIROLIMUS
     Dosage: 0.8 MG, 1X/DAY
     Route: 048
     Dates: start: 20170802, end: 20170817
  4. PULSMARIN A [Concomitant]
     Active Substance: AMBROXOL HYDROCHLORIDE
     Dosage: UNK
     Route: 054
     Dates: start: 20170706, end: 20170712
  5. PULMICORT: RESPULES [Concomitant]
     Dosage: UNK
     Route: 055
     Dates: start: 20170710, end: 20170712
  6. RAPALIMUS [Suspect]
     Active Substance: SIROLIMUS
     Dosage: 0.7 MG, 1X/DAY
     Route: 048
     Dates: start: 20170629, end: 20170710
  7. TSUMURA YOKUKANSAN EXTRACT GRANULES FOR ETHICAL USE [Concomitant]
     Active Substance: HERBALS
     Indication: LYMPHANGIOMA
     Dosage: UNK
     Route: 054
     Dates: start: 20161226, end: 20170712
  8. PREDONINE [Concomitant]
     Active Substance: PREDNISOLONE
     Indication: LYMPHANGIOMA
     Dosage: UNK
     Route: 048
     Dates: start: 20170425
  9. CARBOCISTEINE [Concomitant]
     Active Substance: CARBOCYSTEINE
     Dosage: UNK
     Route: 054
     Dates: start: 20170706, end: 20170712
  10. RAPALIMUS [Suspect]
     Active Substance: SIROLIMUS
     Indication: LYMPHANGIOMA
     Dosage: 0.2 MG, 1X/DAY
     Route: 048
     Dates: start: 20170303, end: 20170412
  11. RAPALIMUS [Suspect]
     Active Substance: SIROLIMUS
     Dosage: 0.9 MG, 1X/DAY
     Route: 048
     Dates: start: 20170711, end: 20170721
  12. PREDONINE [Concomitant]
     Active Substance: PREDNISOLONE
     Indication: LYMPHANGIOMA
     Dosage: UNK
     Route: 065
     Dates: start: 20170426
  13. RAPALIMUS [Suspect]
     Active Substance: SIROLIMUS
     Dosage: 0.6 MG, 1X/DAY
     Route: 048
     Dates: start: 20170608, end: 20170628
  14. RAPALIMUS [Suspect]
     Active Substance: SIROLIMUS
     Dosage: 1 MG, 1X/DAY
     Route: 048
     Dates: start: 20170722, end: 20170801
  15. ONCOVIN [Concomitant]
     Active Substance: VINCRISTINE SULFATE
     Indication: LYMPHANGIOMA
     Dosage: UNK
     Route: 065
     Dates: start: 20170502, end: 20170810
  16. MEPTIN [Concomitant]
     Active Substance: PROCATEROL HYDROCHLORIDE
     Dosage: UNK
     Route: 055
     Dates: start: 20170620, end: 20170712

REACTIONS (19)
  - Tumour haemorrhage [Recovering/Resolving]
  - Coagulopathy [Recovering/Resolving]
  - Coagulopathy [Unknown]
  - Coagulopathy [Recovering/Resolving]
  - Hyperlipidaemia [Recovered/Resolved]
  - Off label use [Unknown]
  - Tumour haemorrhage [Recovering/Resolving]
  - Tumour haemorrhage [Recovering/Resolving]
  - Tumour haemorrhage [Recovering/Resolving]
  - Tumour haemorrhage [Recovering/Resolving]
  - Hypogammaglobulinaemia [Not Recovered/Not Resolved]
  - Coagulopathy [Recovering/Resolving]
  - Coagulopathy [Recovering/Resolving]
  - Hyperlipidaemia [Recovered/Resolved]
  - Condition aggravated [Recovering/Resolving]
  - Hyperlipidaemia [Recovered/Resolved]
  - Tumour haemorrhage [Unknown]
  - Coagulopathy [Recovering/Resolving]
  - Haemorrhagic diathesis [Recovering/Resolving]

NARRATIVE: CASE EVENT DATE: 20170403
